FAERS Safety Report 18786956 (Version 1)
Quarter: 2021Q1

REPORT INFORMATION
  Report Type: Spontaneous
  Country: US (occurrence: US)
  Receive Date: 20210126
  Receipt Date: 20210126
  Transmission Date: 20210419
  Serious: No
  Sender: FDA-Public Use
  Company Number: US-MYLANLABS-2021M1003217

PATIENT
  Sex: Female

DRUGS (2)
  1. PROGESTERONE. [Concomitant]
     Active Substance: PROGESTERONE
     Dosage: UNK
  2. ESTRADIOL TRANSDERMAL SYSTEM [Suspect]
     Active Substance: ESTRADIOL
     Indication: HORMONE REPLACEMENT THERAPY
     Dosage: 1 PATCH TWICE A WEEK
     Route: 062
     Dates: start: 2020, end: 20210114

REACTIONS (4)
  - Abnormal dreams [Not Recovered/Not Resolved]
  - Insomnia [Recovering/Resolving]
  - Nightmare [Not Recovered/Not Resolved]
  - Suspected product quality issue [Not Recovered/Not Resolved]
